FAERS Safety Report 5261807-4 (Version None)
Quarter: 2007Q1

REPORT INFORMATION
  Report Type: 
  Country: None (occurrence: None)
  Receive Date: 20070310
  Receipt Date: 20070228
  Transmission Date: 20070707
  Serious: Yes (Disabling)
  Sender: FDA-Public Use
  Company Number: 2006UW11742

PATIENT
  Sex: Female
  Weight: 81.8 kg

DRUGS (2)
  1. SEROQUEL [Suspect]
     Indication: BIPOLAR I DISORDER
     Route: 048
     Dates: start: 20010101, end: 20060101
  2. SLIM-FAST [Concomitant]

REACTIONS (1)
  - DIABETES MELLITUS [None]
